FAERS Safety Report 5343728-1 (Version None)
Quarter: 2007Q2

REPORT INFORMATION
  Report Type: 
  Country: None (occurrence: None)
  Receive Date: 20070604
  Receipt Date: 20070523
  Transmission Date: 20071010
  Serious: Yes (Other)
  Sender: FDA-Public Use
  Company Number: GB-AMGEN-US227072

PATIENT
  Sex: Male

DRUGS (1)
  1. ENBREL [Suspect]
     Indication: DRUG USE FOR UNKNOWN INDICATION
     Dosage: 50MG, FREQUENCY UNKNOWN
     Route: 058

REACTIONS (4)
  - ARTHRITIS [None]
  - CONDITION AGGRAVATED [None]
  - INJECTION SITE PAIN [None]
  - PHARMACEUTICAL PRODUCT COMPLAINT [None]
